FAERS Safety Report 8426433-4 (Version None)
Quarter: 2012Q2

REPORT INFORMATION
  Report Type: 
  Country: None (occurrence: None)
  Receive Date: 20120611
  Receipt Date: 20120605
  Transmission Date: 20120825
  Serious: Yes (Hospitalization)
  Sender: FDA-Public Use
  Company Number: FR-PFIZER INC-2012129648

PATIENT
  Age: 61 Year
  Sex: Female

DRUGS (5)
  1. MORPHINE SULFATE [Suspect]
  2. SUTENT [Suspect]
     Dosage: 50 MG, 1X/DAY
     Dates: start: 20080401
  3. ZOMETA [Concomitant]
  4. SUTENT [Suspect]
     Dosage: UNK
     Dates: start: 20080213, end: 20080311
  5. SUTENT [Suspect]
     Indication: RENAL CANCER
     Dosage: UNK
     Dates: start: 20080101

REACTIONS (3)
  - NAUSEA [None]
  - DEHYDRATION [None]
  - VOMITING [None]
